FAERS Safety Report 12062853 (Version 1)
Quarter: 2016Q1

REPORT INFORMATION
  Report Type: Spontaneous
  Country: US (occurrence: US)
  Receive Date: 20160210
  Receipt Date: 20160210
  Transmission Date: 20160526
  Serious: No
  Sender: FDA-Public Use
  Company Number: US-ALLERGAN-1505595US

PATIENT
  Age: 72 Year
  Sex: Female
  Weight: 63.49 kg

DRUGS (8)
  1. BOTOX [Suspect]
     Active Substance: ONABOTULINUMTOXINA
     Dosage: UNK, SINGLE
     Route: 030
     Dates: start: 20130814, end: 20130814
  2. CYMBALTA [Concomitant]
     Active Substance: DULOXETINE HYDROCHLORIDE
     Dosage: 20 MG, QD
     Route: 048
  3. XANAX [Concomitant]
     Active Substance: ALPRAZOLAM
     Indication: ANXIETY
     Dosage: 1/4 OF 0.5 MG
     Route: 048
  4. MILK OF MAGNESIA [Concomitant]
     Active Substance: MAGNESIUM HYDROXIDE
     Dosage: UNK, AS NEEDED
  5. BOTOX [Suspect]
     Active Substance: ONABOTULINUMTOXINA
     Indication: MIGRAINE
     Dosage: 200 UNITS, SINGLE, EVERY THREE MONTHS
     Route: 030
     Dates: start: 20141114, end: 20141114
  6. CYCLOBENZAPRINE [Concomitant]
     Active Substance: CYCLOBENZAPRINE
     Indication: PAIN
     Dosage: 10 MG TABLET, 0.5-1 TABLET BY MOUTH EVERY EIGHT HOURS, AS NEEDED
     Route: 048
     Dates: start: 20141124
  7. BOTOX [Suspect]
     Active Substance: ONABOTULINUMTOXINA
     Dosage: UNK, SINGLE
     Route: 030
     Dates: start: 2014, end: 2014
  8. METANX [Concomitant]
     Active Substance: LEVOMEFOLATE CALCIUM\METHYLCOBALAMIN\PYRIDOXAL PHOSPHATE ANHYDROUS
     Dosage: 1 CAPSULE BY MOUTH TWICE A DAY
     Route: 048
     Dates: start: 20140930

REACTIONS (16)
  - Dizziness [Unknown]
  - Vertigo [Unknown]
  - Fatigue [Unknown]
  - Pain in jaw [Not Recovered/Not Resolved]
  - Weight decreased [Unknown]
  - Bruxism [Not Recovered/Not Resolved]
  - Burning mouth syndrome [Unknown]
  - Pharyngeal oedema [Unknown]
  - Helicobacter gastritis [Unknown]
  - Dysphagia [Unknown]
  - Muscular weakness [Unknown]
  - Musculoskeletal discomfort [Not Recovered/Not Resolved]
  - Muscle spasms [Unknown]
  - Dysphonia [Unknown]
  - Head discomfort [Not Recovered/Not Resolved]
  - Trismus [Unknown]

NARRATIVE: CASE EVENT DATE: 20141124
